FAERS Safety Report 5481306-4 (Version None)
Quarter: 2007Q4

REPORT INFORMATION
  Report Type: 
  Country: None (occurrence: None)
  Receive Date: 20071005
  Receipt Date: 20071005
  Transmission Date: 20080405
  Serious: Yes (Disabling, Congenital Anomaly)
  Sender: FDA-Public Use
  Company Number: None

PATIENT
  Sex: Female
  Weight: 59.8748 kg

DRUGS (3)
  1. XANAX [Suspect]
     Indication: STRESS
     Dates: start: 19930101, end: 20070101
  2. KLONOPIN [Suspect]
     Indication: ANXIETY
     Dates: start: 19930101, end: 20070101
  3. ATIVAN [Suspect]
     Indication: ANXIETY
     Dates: start: 19930101, end: 20070101

REACTIONS (2)
  - DRUG DEPENDENCE [None]
  - PHARMACEUTICAL PRODUCT COMPLAINT [None]
